FAERS Safety Report 5783608-0 (Version None)
Quarter: 2008Q2

REPORT INFORMATION
  Report Type: 
  Country: None (occurrence: None)
  Receive Date: 20080605
  Receipt Date: 20080509
  Transmission Date: 20081010
  Serious: No
  Sender: FDA-Public Use
  Company Number: A0716583A

PATIENT
  Age: 38 Year
  Sex: Female

DRUGS (2)
  1. ALLI [Suspect]
     Indication: DRUG USE FOR UNKNOWN INDICATION
  2. TESTOSTERONE [Concomitant]

REACTIONS (7)
  - ALOPECIA [None]
  - APPETITE DISORDER [None]
  - CONSTIPATION [None]
  - DEFAECATION URGENCY [None]
  - DRUG INEFFECTIVE [None]
  - FLATULENCE [None]
  - GASTROINTESTINAL DISORDER [None]
